FAERS Safety Report 8114639-3 (Version None)
Quarter: 2012Q1

REPORT INFORMATION
  Report Type: 
  Country: None (occurrence: None)
  Receive Date: 20120206
  Receipt Date: 20120201
  Transmission Date: 20120608
  Serious: Yes (Other)
  Sender: FDA-Public Use
  Company Number: US-PFIZER INC-2012028352

PATIENT
  Sex: Male

DRUGS (3)
  1. CELEBREX [Suspect]
     Indication: OSTEOARTHRITIS
     Dosage: 200 MG, 1X/DAY
     Route: 048
     Dates: start: 20090101, end: 20120101
  2. LISINOPRIL AND HYDROCHLOROTHIAZIDE [Concomitant]
     Indication: HYPERTENSION
     Dosage: UNK
  3. DEXILANT [Concomitant]
     Dosage: 60 MG, 1X/DAY

REACTIONS (4)
  - DIARRHOEA [None]
  - STRESS [None]
  - COLITIS MICROSCOPIC [None]
  - ARTHRALGIA [None]
